FAERS Safety Report 23378805 (Version 1)
Quarter: 2024Q1

REPORT INFORMATION
  Report Type: Spontaneous
  Country: US (occurrence: US)
  Receive Date: 20240108
  Receipt Date: 20240108
  Transmission Date: 20240410
  Serious: No
  Sender: FDA-Public Use
  Company Number: US-JNJFOC-20240103401

PATIENT
  Age: 51 Year
  Sex: Male

DRUGS (2)
  1. SPRAVATO [Suspect]
     Active Substance: ESKETAMINE
     Indication: Product used for unknown indication
     Route: 065
     Dates: start: 2023
  2. SPRAVATO [Suspect]
     Active Substance: ESKETAMINE
     Route: 065
     Dates: start: 20240102

REACTIONS (2)
  - Hypertension [Unknown]
  - Dissociation [Unknown]

NARRATIVE: CASE EVENT DATE: 20240102
